FAERS Safety Report 4828408-0 (Version None)
Quarter: 2005Q4

REPORT INFORMATION
  Report Type: 
  Country: None (occurrence: None)
  Receive Date: 20051115
  Receipt Date: 20050928
  Transmission Date: 20060501
  Serious: Yes (Death, Hospitalization)
  Sender: FDA-Public Use
  Company Number: US-MERCK-0509USA04437

PATIENT
  Age: 65 Year
  Sex: Male
  Weight: 68 kg

DRUGS (9)
  1. VIOXX [Suspect]
     Indication: ARTHRITIS
     Route: 048
     Dates: start: 20021201, end: 20040930
  2. PHENOBARBITAL [Concomitant]
     Route: 065
  3. LORCET-HD [Concomitant]
     Route: 065
  4. THEOPHYLLINE [Concomitant]
     Route: 065
  5. DILANTIN [Concomitant]
     Route: 065
  6. PHENERGAN [Concomitant]
     Route: 065
  7. ZANTAC [Concomitant]
     Route: 065
  8. ALBUTEROL [Concomitant]
     Route: 065
  9. SEREVENT [Concomitant]
     Route: 065

REACTIONS (5)
  - CEREBROVASCULAR ACCIDENT [None]
  - CHRONIC OBSTRUCTIVE PULMONARY DISEASE [None]
  - LUNG NEOPLASM MALIGNANT [None]
  - RESPIRATORY FAILURE [None]
  - TOBACCO USER [None]
